FAERS Safety Report 7134994-0 (Version None)
Quarter: 2010Q4

REPORT INFORMATION
  Report Type: 
  Country: None (occurrence: None)
  Receive Date: 20101203
  Receipt Date: 20101201
  Transmission Date: 20110411
  Serious: Yes (Hospitalization)
  Sender: FDA-Public Use
  Company Number: AU-MERCK-0603AUS00234

PATIENT
  Age: 75 Year
  Sex: Female

DRUGS (12)
  1. ZOCOR [Suspect]
     Indication: METABOLIC SYNDROME
     Route: 065
     Dates: start: 20010815, end: 20040728
  2. CLARITHROMYCIN [Suspect]
     Indication: UPPER RESPIRATORY TRACT INFECTION
     Route: 065
     Dates: start: 20040706
  3. GEMFIBROZIL [Suspect]
     Indication: METABOLIC SYNDROME
     Route: 048
     Dates: start: 20000101, end: 20040728
  4. ASPIRIN [Concomitant]
     Route: 065
  5. CARVEDILOL [Concomitant]
     Route: 065
  6. CANDESARTAN CILEXETIL [Concomitant]
     Route: 065
  7. [THERAPY UNSPECIFIED] [Concomitant]
     Route: 065
  8. [THERAPY UNSPECIFIED] [Concomitant]
     Route: 065
  9. BUDESONIDE [Concomitant]
     Route: 065
  10. CEFACLOR [Concomitant]
     Route: 065
  11. AMOXICILLIN AND CLAVULANATE POTASSIUM [Concomitant]
     Route: 065
  12. CEPHALEXIN [Concomitant]
     Route: 065

REACTIONS (6)
  - ABASIA [None]
  - BLOOD CREATINE PHOSPHOKINASE INCREASED [None]
  - CHROMATURIA [None]
  - DRUG INTERACTION [None]
  - MUSCULAR WEAKNESS [None]
  - RHABDOMYOLYSIS [None]
